FAERS Safety Report 7397160-X (Version None)
Quarter: 2011Q2

REPORT INFORMATION
  Report Type: 
  Country: None (occurrence: None)
  Receive Date: 20110406
  Receipt Date: 20110331
  Transmission Date: 20111010
  Serious: Yes (Other)
  Sender: FDA-Public Use
  Company Number: B0710403A

PATIENT
  Age: 74 Year
  Sex: Female

DRUGS (8)
  1. PANTOSIN [Suspect]
     Route: 065
  2. UNKNOWN DRUG [Suspect]
     Route: 048
  3. ALMARL [Suspect]
     Route: 048
  4. RACOL [Suspect]
     Route: 065
  5. PAXIL [Suspect]
     Dosage: 20MG PER DAY
     Route: 048
  6. CEREDIST [Suspect]
     Route: 048
  7. GASTER [Suspect]
     Route: 065
  8. ACTONEL [Suspect]
     Route: 048

REACTIONS (3)
  - AGGRESSION [None]
  - DELIRIUM [None]
  - VERBAL ABUSE [None]
